FAERS Safety Report 16933658 (Version 2)
Quarter: 2022Q1

REPORT INFORMATION
  Report Type: Other
  Country: JP (occurrence: None)
  Receive Date: 20191018
  Receipt Date: 20220120
  Transmission Date: 20220423
  Serious: Yes (Other)
  Sender: FDA-Public Use
  Company Number: JP-ROCHE-2438245

PATIENT
  Sex: Female

DRUGS (3)
  1. BEVACIZUMAB [Suspect]
     Active Substance: BEVACIZUMAB
     Indication: Ovarian cancer
     Route: 065
  2. GEMCITABINE [Suspect]
     Active Substance: GEMCITABINE
     Indication: Ovarian cancer
     Dosage: ON DAY 1 AND DAY 8
     Route: 065
  3. CARBOPLATIN [Suspect]
     Active Substance: CARBOPLATIN
     Indication: Ovarian cancer
     Dosage: AUC 4 ON DAY 1
     Route: 065

REACTIONS (5)
  - Leukopenia [Unknown]
  - Neutropenia [Unknown]
  - Anaemia [Unknown]
  - Thrombocytopenia [Unknown]
  - Hypertension [Unknown]
